FAERS Safety Report 12497411 (Version 2)
Quarter: 2016Q3

REPORT INFORMATION
  Report Type: Spontaneous
  Country: JP (occurrence: JP)
  Receive Date: 20160624
  Receipt Date: 20160714
  Transmission Date: 20161109
  Serious: Yes (Other)
  Sender: FDA-Public Use
  Company Number: JP-FRESENIUS KABI-FK201603872

PATIENT
  Age: 36 Year
  Sex: Female
  Weight: 56 kg

DRUGS (5)
  1. GLUCOSE [Concomitant]
     Active Substance: DEXTROSE
     Indication: FOETAL GROWTH ABNORMALITY
     Dates: start: 20160615
  2. LIDOCAINE. [Concomitant]
     Active Substance: LIDOCAINE
     Indication: PERINEOTOMY
     Dates: start: 20160615
  3. ATONIN O [Concomitant]
     Active Substance: OXYTOCIN
     Indication: PRODUCT USED FOR UNKNOWN INDICATION
     Dates: start: 20160615
  4. VOLUVEN [Suspect]
     Active Substance: HYDROXYETHYL STARCH 130/0.4
     Indication: HAEMORRHAGE
     Route: 041
     Dates: start: 20160615, end: 20160615
  5. ATONIN O [Concomitant]
     Active Substance: OXYTOCIN
     Indication: FOETAL GROWTH ABNORMALITY
     Dates: start: 20160615

REACTIONS (1)
  - Anaphylactic reaction [Recovered/Resolved]

NARRATIVE: CASE EVENT DATE: 20160615
